FAERS Safety Report 7167672-2 (Version None)
Quarter: 2010Q4

REPORT INFORMATION
  Report Type: 
  Country: None (occurrence: None)
  Receive Date: 20101216
  Receipt Date: 20100719
  Transmission Date: 20110411
  Serious: No
  Sender: FDA-Public Use
  Company Number: A0870614A

PATIENT
  Sex: Female

DRUGS (1)
  1. COMMIT [Suspect]
     Indication: SMOKING CESSATION THERAPY
     Dosage: 2LOZ CUMULATIVE DOSE
     Dates: start: 20100714, end: 20100714

REACTIONS (2)
  - HICCUPS [None]
  - THERMAL BURN [None]
